FAERS Safety Report 9690390 (Version 1)
Quarter: 2013Q4

REPORT INFORMATION
  Report Type: Spontaneous
  Country: US (occurrence: None)
  Receive Date: 20131114
  Receipt Date: 20131114
  Transmission Date: 20140711
  Serious: Yes (Hospitalization)
  Sender: FDA-Public Use
  Company Number: None

PATIENT
  Age: 57 Year
  Sex: Female
  Weight: 46.5 kg

DRUGS (2)
  1. IFOSFAMIDE [Suspect]
  2. PACLITAXEL [Suspect]

REACTIONS (4)
  - Anaemia [None]
  - Hypotension [None]
  - Renal failure acute [None]
  - Hypovolaemia [None]
